FAERS Safety Report 12938229 (Version 2)
Quarter: 2017Q1

REPORT INFORMATION
  Report Type: Spontaneous
  Country: NO (occurrence: NO)
  Receive Date: 20161114
  Receipt Date: 20170317
  Transmission Date: 20170428
  Serious: Yes (Life-Threatening)
  Sender: FDA-Public Use
  Company Number: NO-ENDO PHARMACEUTICALS INC.-2016-006781

PATIENT
  Age: 67 Year
  Sex: Male
  Weight: 75 kg

DRUGS (1)
  1. XIAPEX [Suspect]
     Active Substance: COLLAGENASE CLOSTRIDIUM HISTOLYTICUM
     Indication: DUPUYTREN^S CONTRACTURE
     Dosage: UNK
     Route: 065
     Dates: start: 20141128, end: 20141128

REACTIONS (1)
  - Acute myocardial infarction [Recovered/Resolved with Sequelae]

NARRATIVE: CASE EVENT DATE: 20141205
